FAERS Safety Report 5822418-2 (Version None)
Quarter: 2008Q3

REPORT INFORMATION
  Report Type: 
  Country: None (occurrence: None)
  Receive Date: 20080725
  Receipt Date: 20080721
  Transmission Date: 20090109
  Serious: Yes (Other)
  Sender: FDA-Public Use
  Company Number: CA-ASTRAZENECA-2008UW14364

PATIENT
  Sex: Male

DRUGS (7)
  1. CRESTOR [Suspect]
     Indication: BLOOD CHOLESTEROL INCREASED
     Route: 048
     Dates: start: 20070101
  2. CRESTOR [Suspect]
     Route: 048
  3. CRESTOR [Suspect]
     Route: 048
     Dates: start: 20080714, end: 20080721
  4. ADALAT [Concomitant]
     Indication: HYPERTENSION
     Dates: end: 20080717
  5. REMINYL [Concomitant]
     Indication: COGNITIVE DISORDER
  6. VITAMIN D [Concomitant]
  7. ASPIRIN [Concomitant]
     Indication: CARDIOVASCULAR DISORDER

REACTIONS (3)
  - BALANCE DISORDER [None]
  - FALL [None]
  - VASCULAR GRAFT [None]
